FAERS Safety Report 4955524-5 (Version None)
Quarter: 2006Q1

REPORT INFORMATION
  Report Type: 
  Country: None (occurrence: None)
  Receive Date: 20060328
  Receipt Date: 20051219
  Transmission Date: 20060701
  Serious: Yes (Life-Threatening, Hospitalization)
  Sender: FDA-Public Use
  Company Number: DE-BRISTOL-MYERS SQUIBB COMPANY-13224886

PATIENT
  Age: 54 Year
  Sex: Male

DRUGS (4)
  1. CETUXIMAB [Suspect]
     Indication: NON-SMALL CELL LUNG CANCER
     Dosage: DOSE DELAYED ON 22-DEC-2005.
     Route: 041
     Dates: start: 20051215
  2. CISPLATIN [Suspect]
     Indication: NON-SMALL CELL LUNG CANCER
     Dosage: DOSE DELAYED ON 22-DEC-2005.
     Route: 042
     Dates: start: 20051215
  3. VINORELBINE [Suspect]
     Indication: NON-SMALL CELL LUNG CANCER
     Dosage: DOSE DELAYED ON 22-DEC-2005.
     Route: 042
     Dates: start: 20051215
  4. MST [Concomitant]

REACTIONS (2)
  - ABDOMINAL PAIN [None]
  - INTESTINAL PERFORATION [None]
